FAERS Safety Report 21694591 (Version 1)
Quarter: 2022Q4

REPORT INFORMATION
  Report Type: Spontaneous
  Country: US (occurrence: US)
  Receive Date: 20221207
  Receipt Date: 20221207
  Transmission Date: 20230112
  Serious: Yes (Hospitalization, Other)
  Sender: FDA-Public Use
  Company Number: US-MYLANLABS-2022M1136039

PATIENT
  Age: 20 Year
  Sex: Male

DRUGS (12)
  1. ETOPOSIDE [Suspect]
     Active Substance: ETOPOSIDE
     Indication: Primary mediastinal large B-cell lymphoma recurrent
     Dosage: UNK , CYCLE, 6 CYCLE
     Route: 065
  2. ETOPOSIDE [Suspect]
     Active Substance: ETOPOSIDE
     Dosage: UNK, CYCLE, 2 CYCLES
     Route: 065
  3. PREDNISONE [Suspect]
     Active Substance: PREDNISONE
     Indication: Primary mediastinal large B-cell lymphoma recurrent
     Dosage: UNK, CYCLE, 6 CYCLE
     Route: 065
  4. PREDNISONE [Suspect]
     Active Substance: PREDNISONE
     Dosage: THERAPY CONTINUED AND THEN TAPERED
     Route: 065
  5. DOXORUBICIN [Suspect]
     Active Substance: DOXORUBICIN
     Indication: Primary mediastinal large B-cell lymphoma recurrent
     Dosage: UNK , CYCLE,6 CYCLE
     Route: 065
  6. IFOSFAMIDE [Suspect]
     Active Substance: IFOSFAMIDE
     Indication: Primary mediastinal large B-cell lymphoma recurrent
     Dosage: UNK, CYCLE, TWO CYCLES
     Route: 065
  7. CARBOPLATIN [Suspect]
     Active Substance: CARBOPLATIN
     Indication: Primary mediastinal large B-cell lymphoma recurrent
     Dosage: UNK, CYCLE, TWO CYCLES
     Route: 065
  8. MESNA [Suspect]
     Active Substance: MESNA
     Indication: Primary mediastinal large B-cell lymphoma recurrent
     Dosage: UNK, CYCLE, TWO CYCLES
     Route: 065
  9. ONCOVIN [Suspect]
     Active Substance: VINCRISTINE SULFATE
     Indication: Primary mediastinal large B-cell lymphoma recurrent
     Dosage: UNK, CYCLE,6 CYCLE
     Route: 065
  10. CYCLOPHOSPHAMIDE [Suspect]
     Active Substance: CYCLOPHOSPHAMIDE
     Indication: Primary mediastinal large B-cell lymphoma recurrent
     Dosage: UNK, CYCLE,6 CYCLE
     Route: 065
  11. BRENTUXIMAB [Suspect]
     Active Substance: BRENTUXIMAB
     Indication: Primary mediastinal large B-cell lymphoma recurrent
     Dosage: UNK, TWO INFUSIONS
     Route: 042
  12. RITUXIMAB [Suspect]
     Active Substance: RITUXIMAB
     Indication: Primary mediastinal large B-cell lymphoma recurrent
     Dosage: UNK, CYCLE, 6 CYCLE
     Route: 065

REACTIONS (5)
  - Pulmonary hypertension [Recovered/Resolved]
  - Pulmonary veno-occlusive disease [Recovered/Resolved]
  - Right ventricular failure [Recovered/Resolved]
  - Drug ineffective [Unknown]
  - Neuropathy peripheral [Recovering/Resolving]
